FAERS Safety Report 23287000 (Version 2)
Quarter: 2023Q4

REPORT INFORMATION
  Report Type: Spontaneous
  Country: JP (occurrence: JP)
  Receive Date: 20231212
  Receipt Date: 20231225
  Transmission Date: 20240110
  Serious: Yes (Other)
  Sender: FDA-Public Use
  Company Number: JP-ASTELLAS-2023JP013286

PATIENT
  Age: 82 Year
  Sex: Male

DRUGS (2)
  1. XOSPATA [Suspect]
     Active Substance: GILTERITINIB
     Indication: Acute myeloid leukaemia refractory
     Route: 048
     Dates: start: 20231121
  2. URSO [Concomitant]
     Active Substance: URSODIOL
     Indication: Liver disorder
     Dosage: UNK UNK, UNKNOWN FREQ.
     Route: 065
     Dates: start: 20231128

REACTIONS (2)
  - Myelosuppression [Not Recovered/Not Resolved]
  - Liver disorder [Recovered/Resolved]

NARRATIVE: CASE EVENT DATE: 20231127
